FAERS Safety Report 4450308-9 (Version None)
Quarter: 2004Q3

REPORT INFORMATION
  Report Type: 
  Country: None (occurrence: None)
  Receive Date: 20040914
  Receipt Date: 20040830
  Transmission Date: 20050211
  Serious: Yes (Life-Threatening, Disabling)
  Sender: FDA-Public Use
  Company Number: 04P-229-0271920-00

PATIENT
  Age: 54 Year
  Sex: Male

DRUGS (3)
  1. VALPROATE SODIUM [Suspect]
     Dosage: 400 MG, 4 IN 1 D, ORAL
     Route: 048
  2. CARBAMAZEPINE [Concomitant]
  3. PHENYTOIN [Concomitant]

REACTIONS (1)
  - DYSPHAGIA [None]
